FAERS Safety Report 10024946 (Version 1)
Quarter: 2014Q1

REPORT INFORMATION
  Report Type: Spontaneous
  Country: CN (occurrence: CN)
  Receive Date: 20140320
  Receipt Date: 20140320
  Transmission Date: 20141002
  Serious: Yes (Other)
  Sender: FDA-Public Use
  Company Number: CN-BAYER-2014-038060

PATIENT
  Sex: Male

DRUGS (2)
  1. BAYASPIRIN [Suspect]
     Route: 048
  2. PLAVIX [Concomitant]

REACTIONS (1)
  - Gastritis erosive [None]
